FAERS Safety Report 5177804-3 (Version None)
Quarter: 2006Q4

REPORT INFORMATION
  Report Type: 
  Country: None (occurrence: None)
  Receive Date: 20061218
  Receipt Date: 20060725
  Transmission Date: 20070319
  Serious: No
  Sender: FDA-Public Use
  Company Number: US-AMGEN-KDL187792

PATIENT
  Sex: Female

DRUGS (3)
  1. ENBREL [Suspect]
     Indication: RHEUMATOID ARTHRITIS
     Route: 058
     Dates: start: 20060530
  2. METHOTREXATE [Concomitant]
     Dates: start: 20020101
  3. ARAVA [Concomitant]
     Dates: start: 20040101

REACTIONS (7)
  - HEADACHE [None]
  - HYPOAESTHESIA [None]
  - INJECTION SITE BRUISING [None]
  - INJECTION SITE REACTION [None]
  - MYALGIA [None]
  - NAUSEA [None]
  - NECK PAIN [None]
